FAERS Safety Report 23640242 (Version 2)
Quarter: 2024Q2

REPORT INFORMATION
  Report Type: Report from Study
  Country: US (occurrence: US)
  Receive Date: 20240317
  Receipt Date: 20240520
  Transmission Date: 20240716
  Serious: Yes (Other)
  Sender: FDA-Public Use
  Company Number: US-002147023-NVSC2024US039702

PATIENT
  Sex: Male

DRUGS (2)
  1. KESIMPTA [Suspect]
     Active Substance: OFATUMUMAB
     Indication: Multiple sclerosis
     Dosage: UNK
     Route: 065
  2. KESIMPTA [Suspect]
     Active Substance: OFATUMUMAB
     Indication: Relapsing multiple sclerosis
     Dosage: 20 MG, QMO
     Route: 058
     Dates: start: 20230725

REACTIONS (11)
  - Erectile dysfunction [Unknown]
  - Abdominal distension [Unknown]
  - Headache [Recovered/Resolved]
  - Myalgia [Recovered/Resolved]
  - Muscle fatigue [Recovered/Resolved]
  - Dysphagia [Recovered/Resolved]
  - Fatigue [Recovered/Resolved]
  - Hyperhidrosis [Recovered/Resolved]
  - Alanine aminotransferase increased [Unknown]
  - Arthralgia [Unknown]
  - Hypoaesthesia [Unknown]
